FAERS Safety Report 6839151-0 (Version None)
Quarter: 2010Q3

REPORT INFORMATION
  Report Type: 
  Country: None (occurrence: None)
  Receive Date: 20100714
  Receipt Date: 20100701
  Transmission Date: 20110219
  Serious: Yes (Other)
  Sender: FDA-Public Use
  Company Number: DE-CELGENEUS-062-21880-09062181

PATIENT
  Age: 40 Year
  Sex: Female
  Weight: 56 kg

DRUGS (3)
  1. REVLIMID [Suspect]
     Route: 048
     Dates: start: 20090217, end: 20090619
  2. VALACYCLOVIR [Concomitant]
     Indication: PROPHYLAXIS
     Route: 065
     Dates: start: 20090126
  3. CLOTRIMAZOLE [Concomitant]
     Indication: PROPHYLAXIS
     Route: 065
     Dates: start: 20081203

REACTIONS (2)
  - CHLOROMA [None]
  - DISEASE RECURRENCE [None]
